FAERS Safety Report 5797638-6 (Version None)
Quarter: 2008Q2

REPORT INFORMATION
  Report Type: 
  Country: None (occurrence: None)
  Receive Date: 20080618
  Receipt Date: 20070716
  Transmission Date: 20081010
  Serious: Yes (Hospitalization)
  Sender: FDA-Public Use
  Company Number: 200714373US

PATIENT
  Age: 68 Year
  Sex: Male

DRUGS (9)
  1. LANTUS [Suspect]
     Indication: TYPE 2 DIABETES MELLITUS
     Dosage: 30 U QD
     Dates: start: 20050101
  2. OPTICLIK [Suspect]
     Indication: TYPE 2 DIABETES MELLITUS
     Dates: start: 20050101
  3. NOVOLOG [Concomitant]
  4. SYNTHROID [Concomitant]
  5. SIMVASTATIN, EZETIMIBE (VYTORIN) [Concomitant]
  6. PREVACID [Concomitant]
  7. ASCORBIC ACID, TOCOPHERYL ACETATE, RETINOL, ZINC, CALCIUM, VITAMINS NO [Concomitant]
  8. FOSAMAX PLUS D [Concomitant]
  9. NAPROXEN SODIUM (ANAPROX) [Concomitant]

REACTIONS (7)
  - HYPERHIDROSIS [None]
  - HYPOGLYCAEMIA [None]
  - HYPOTENSION [None]
  - PALLOR [None]
  - STUPOR [None]
  - TREMOR [None]
  - VENTRICULAR EXTRASYSTOLES [None]
